FAERS Safety Report 12438523 (Version 1)
Quarter: 2016Q2

REPORT INFORMATION
  Report Type: Spontaneous
  Country: US (occurrence: US)
  Receive Date: 20160606
  Receipt Date: 20160606
  Transmission Date: 20160815
  Serious: Yes (Life-Threatening, Other)
  Sender: FDA-Public Use
  Company Number: US-GLAXOSMITHKLINE-US2016079514

PATIENT
  Age: 53 Year
  Sex: Male

DRUGS (19)
  1. LYRICA [Concomitant]
     Active Substance: PREGABALIN
  2. NIACIN. [Concomitant]
     Active Substance: NIACIN
  3. LISINOPRIL. [Concomitant]
     Active Substance: LISINOPRIL
  4. DEXILANT [Concomitant]
     Active Substance: DEXLANSOPRAZOLE
  5. PROVENTIL [Concomitant]
     Active Substance: ALBUTEROL
  6. ALPRAZOLAM. [Concomitant]
     Active Substance: ALPRAZOLAM
  7. BREO ELLIPTA [Concomitant]
     Active Substance: FLUTICASONE FUROATE\VILANTEROL TRIFENATATE
  8. PHENERGAN [Concomitant]
     Active Substance: PROMETHAZINE HYDROCHLORIDE
  9. OXYCODONE [Concomitant]
     Active Substance: OXYCODONE
  10. VICTOZA [Concomitant]
     Active Substance: LIRAGLUTIDE
  11. METFORMIN [Concomitant]
     Active Substance: METFORMIN HYDROCHLORIDE
  12. METOPROLOL. [Concomitant]
     Active Substance: METOPROLOL
  13. LOVAZA [Suspect]
     Active Substance: OMEGA-3-ACID ETHYL ESTERS
     Indication: BLOOD TRIGLYCERIDES
     Dosage: 2 G, BID
     Route: 048
     Dates: start: 2015
  14. GLIPIZIDE. [Concomitant]
     Active Substance: GLIPIZIDE
  15. CITALOPRAM [Concomitant]
     Active Substance: CITALOPRAM HYDROBROMIDE
  16. NITROSTAT [Concomitant]
     Active Substance: NITROGLYCERIN
  17. RANOLAZINE [Concomitant]
     Active Substance: RANOLAZINE
  18. AMLODIPINE [Concomitant]
     Active Substance: AMLODIPINE BESYLATE
  19. FUROSEMIDE. [Concomitant]
     Active Substance: FUROSEMIDE

REACTIONS (2)
  - Hernia repair [Recovering/Resolving]
  - Hernia [Recovering/Resolving]

NARRATIVE: CASE EVENT DATE: 201603
